FAERS Safety Report 9843757 (Version 1)
Quarter: 2014Q1

REPORT INFORMATION
  Report Type: Spontaneous
  Country: US (occurrence: US)
  Receive Date: 20140126
  Receipt Date: 20140126
  Transmission Date: 20141002
  Serious: No
  Sender: FDA-Public Use
  Company Number: US-009507513-1401USA008009

PATIENT
  Sex: Male

DRUGS (1)
  1. ISENTRESS [Suspect]
     Dosage: 400 MG, BID

REACTIONS (4)
  - Respiratory tract infection [Unknown]
  - Skin irritation [Unknown]
  - Sinusitis [Unknown]
  - Lymph node pain [Unknown]
